FAERS Safety Report 23303247 (Version 1)
Quarter: 2023Q4

REPORT INFORMATION
  Report Type: Spontaneous
  Country: US (occurrence: None)
  Receive Date: 20231215
  Receipt Date: 20231215
  Transmission Date: 20240110
  Serious: Yes (Death)
  Sender: FDA-Public Use
  Company Number: 2023A285451

PATIENT
  Age: 33 Year
  Sex: Male

DRUGS (8)
  1. BRILINTA [Suspect]
     Active Substance: TICAGRELOR
  2. QUETIAPINE [Suspect]
     Active Substance: QUETIAPINE
  3. METOPROLOL [Suspect]
     Active Substance: METOPROLOL
  4. DOXEPIN [Suspect]
     Active Substance: DOXEPIN
  5. LOSARTAN [Suspect]
     Active Substance: LOSARTAN
  6. AMLODIPINE [Suspect]
     Active Substance: AMLODIPINE BESYLATE
  7. TRAMADOL [Suspect]
     Active Substance: TRAMADOL\TRAMADOL HYDROCHLORIDE
  8. HYDROXYZINE [Suspect]
     Active Substance: HYDROXYZINE HYDROCHLORIDE

REACTIONS (2)
  - Toxicity to various agents [Fatal]
  - Completed suicide [Fatal]
